FAERS Safety Report 7384828-4 (Version None)
Quarter: 2011Q1

REPORT INFORMATION
  Report Type: 
  Country: None (occurrence: None)
  Receive Date: 20110330
  Receipt Date: 20110324
  Transmission Date: 20110831
  Serious: Yes (Life-Threatening, Hospitalization)
  Sender: FDA-Public Use
  Company Number: CH-ABBOTT-11P-151-0714023-00

PATIENT
  Age: 62 Year
  Sex: Male
  Weight: 100 kg

DRUGS (11)
  1. METHOTREXATE [Suspect]
     Route: 048
     Dates: start: 20100428
  2. PREDNISONE [Suspect]
     Dates: start: 20101129, end: 20101230
  3. METHOTREXATE [Suspect]
     Dates: start: 20100716, end: 20100922
  4. SPIRONOLACTONE [Concomitant]
     Indication: CARDIAC FAILURE CONGESTIVE
     Route: 048
     Dates: end: 20110131
  5. NOVALGIN [Suspect]
     Indication: RHEUMATOID ARTHRITIS
     Dates: start: 20110114, end: 20110117
  6. METHOTREXATE [Suspect]
     Indication: RHEUMATOID ARTHRITIS
     Route: 058
     Dates: start: 20100401, end: 20100401
  7. PREDNISONE [Suspect]
     Indication: RHEUMATOID ARTHRITIS
     Dates: start: 20101015
  8. ENBREL [Suspect]
     Indication: RHEUMATOID ARTHRITIS
     Route: 058
     Dates: start: 20101122, end: 20110121
  9. FUROSEMIDE [Concomitant]
     Indication: CARDIAC FAILURE CONGESTIVE
     Route: 048
     Dates: end: 20110131
  10. HUMIRA [Suspect]
     Indication: RHEUMATOID ARTHRITIS
     Route: 041
     Dates: start: 20110121, end: 20110121
  11. ARAVA [Suspect]
     Indication: RHEUMATOID ARTHRITIS
     Route: 048
     Dates: start: 20100922, end: 20101122

REACTIONS (7)
  - CARDIAC ARREST [None]
  - AMYLOIDOSIS [None]
  - CARDIAC FAILURE [None]
  - VENTRICULAR TACHYCARDIA [None]
  - VENTRICULAR FIBRILLATION [None]
  - SYNCOPE [None]
  - BUNDLE BRANCH BLOCK LEFT [None]
